FAERS Safety Report 8526497 (Version 4)
Quarter: 2013Q2

REPORT INFORMATION
  Report Type: Spontaneous
  Country: FR (occurrence: FR)
  Receive Date: 20120423
  Receipt Date: 20130402
  Transmission Date: 20140414
  Serious: Yes (Life-Threatening, Hospitalization)
  Sender: FDA-Public Use
  Company Number: FR-PFIZER INC-2012095580

PATIENT
  Age: 36 Year
  Sex: Female

DRUGS (5)
  1. EFFEXOR LP [Suspect]
     Dosage: 37.5 MG, 1 DOSAGE FORM PER DAY
     Route: 048
     Dates: start: 20100828, end: 20110203
  2. EFFEXOR LP [Suspect]
     Dosage: 75 MG, 1 DOSAGE FORM PER DAY
     Route: 048
     Dates: start: 20110204, end: 20120217
  3. VARNOLINE [Suspect]
     Dosage: UNK
     Dates: start: 20100603, end: 20120217
  4. ZOLPIDEM [Concomitant]
     Dosage: UNK
  5. ALPRAZOLAM [Concomitant]
     Dosage: UNK

REACTIONS (6)
  - Ischaemic stroke [Recovered/Resolved with Sequelae]
  - Hyperglycaemia [Unknown]
  - Brain midline shift [None]
  - Ventricular extrasystoles [None]
  - VIIth nerve paralysis [None]
  - Brain herniation [None]
